FAERS Safety Report 20394232 (Version 1)
Quarter: 2022Q1

REPORT INFORMATION
  Report Type: Spontaneous
  Country: US (occurrence: US)
  Receive Date: 20220129
  Receipt Date: 20220129
  Transmission Date: 20220423
  Serious: No
  Sender: FDA-Public Use
  Company Number: US-drreddys-SPO/USA/22/0146101

PATIENT
  Sex: Female

DRUGS (2)
  1. NICOTINE [Suspect]
     Active Substance: NICOTINE
     Indication: Tobacco user
     Route: 062
  2. NICOTINE [Suspect]
     Active Substance: NICOTINE
     Route: 062
     Dates: start: 202111

REACTIONS (3)
  - Product dose omission issue [Unknown]
  - Product administration interrupted [Unknown]
  - Expired product administered [Unknown]
